FAERS Safety Report 21034270 (Version 1)
Quarter: 2022Q2

REPORT INFORMATION
  Report Type: Spontaneous
  Country: US (occurrence: None)
  Receive Date: 20220630
  Receipt Date: 20220630
  Transmission Date: 20220720
  Serious: Yes (Hospitalization)
  Sender: FDA-Public Use
  Company Number: None

PATIENT
  Age: 70 Year
  Sex: Female

DRUGS (1)
  1. CAPECITABINE [Suspect]
     Active Substance: CAPECITABINE
     Dosage: 1500MG BID ORAL
     Route: 048
     Dates: start: 202206, end: 20220623

REACTIONS (4)
  - Palmar-plantar erythrodysaesthesia syndrome [None]
  - Therapy interrupted [None]
  - Large intestine polyp [None]
  - Procedural pain [None]

NARRATIVE: CASE EVENT DATE: 20220510
